FAERS Safety Report 6474448-8 (Version None)
Quarter: 2009Q4

REPORT INFORMATION
  Report Type: 
  Country: None (occurrence: None)
  Receive Date: 20091204
  Receipt Date: 20081227
  Transmission Date: 20100525
  Serious: No
  Sender: FDA-Public Use
  Company Number: US-AMGEN-KDL325885

PATIENT
  Sex: Female
  Weight: 59 kg

DRUGS (6)
  1. ENBREL [Suspect]
     Indication: ANKYLOSING SPONDYLITIS
     Route: 058
     Dates: start: 20081125
  2. METHOTREXATE [Concomitant]
     Route: 048
     Dates: start: 20080324
  3. TRAMADOL HCL [Concomitant]
     Dates: start: 20080524
  4. TYLENOL (CAPLET) [Concomitant]
     Dates: start: 20080524
  5. EFFEXOR [Concomitant]
  6. DARVOCET-N 100 [Concomitant]
     Dates: start: 20080722

REACTIONS (7)
  - EYE DISORDER [None]
  - INJECTION SITE ERYTHEMA [None]
  - INJECTION SITE HAEMORRHAGE [None]
  - INJECTION SITE PAIN [None]
  - INJECTION SITE PRURITUS [None]
  - INJECTION SITE RASH [None]
  - INJECTION SITE SWELLING [None]
